FAERS Safety Report 10438246 (Version 2)
Quarter: 2014Q3

REPORT INFORMATION
  Report Type: Spontaneous
  Country: US (occurrence: US)
  Receive Date: 20140908
  Receipt Date: 20140908
  Transmission Date: 20150326
  Serious: Yes (Hospitalization)
  Sender: FDA-Public Use
  Company Number: US-GLAXOSMITHKLINE-A0890418A

PATIENT
  Age: 54 Year
  Sex: Male

DRUGS (1)
  1. LAMICTAL [Suspect]
     Active Substance: LAMOTRIGINE
     Indication: AFFECTIVE DISORDER
     Dosage: 100MG UNKNOWN
     Route: 065
     Dates: start: 20030603

REACTIONS (7)
  - Personality change [Unknown]
  - Stress [Unknown]
  - Schizophrenia [Not Recovered/Not Resolved]
  - Mania [Unknown]
  - Grandiosity [Unknown]
  - Thinking abnormal [Unknown]
  - Confusional state [Unknown]

NARRATIVE: CASE EVENT DATE: 201011
